FAERS Safety Report 6385811-8 (Version None)
Quarter: 2009Q4

REPORT INFORMATION
  Report Type: 
  Country: None (occurrence: None)
  Receive Date: 20091002
  Receipt Date: 20090921
  Transmission Date: 20100525
  Serious: Yes (Hospitalization, Other)
  Sender: FDA-Public Use
  Company Number: US-AMGEN-QUU362626

PATIENT
  Sex: Male
  Weight: 77 kg

DRUGS (24)
  1. EPOGEN [Suspect]
     Indication: RENAL FAILURE CHRONIC
     Dates: start: 20080911, end: 20090901
  2. ARANESP [Suspect]
     Indication: RENAL FAILURE CHRONIC
  3. ALKERAN [Suspect]
     Dates: start: 20080809
  4. ADVAIR DISKUS 100/50 [Concomitant]
     Route: 048
     Dates: start: 20090202
  5. ALLOPURINOL [Concomitant]
  6. ASPIRIN [Concomitant]
     Route: 048
     Dates: start: 20080516
  7. AVODART [Concomitant]
     Route: 048
     Dates: start: 20080516
  8. CRESTOR [Concomitant]
     Route: 048
     Dates: start: 20080516
  9. LACTULOSE [Concomitant]
     Route: 048
     Dates: start: 20090410
  10. FLOMAX [Concomitant]
     Route: 048
     Dates: start: 20080516
  11. MIRALAX [Concomitant]
  12. NEXIUM [Concomitant]
  13. LOVAZA [Concomitant]
  14. PENTOXIFYLLINE [Concomitant]
     Route: 048
     Dates: start: 20090522
  15. PLAVIX [Concomitant]
     Route: 048
  16. VITAMINS, OTHER COMBINATIONS [Concomitant]
     Route: 048
  17. RENAGEL [Concomitant]
  18. SINGULAIR [Concomitant]
     Route: 048
  19. SPIRIVA [Concomitant]
  20. UNSPECIFIED MEDICATION [Concomitant]
     Dates: start: 20090121
  21. GLIMEPIRIDE [Concomitant]
     Dates: start: 20090727
  22. HECTORAL [Concomitant]
     Route: 042
     Dates: start: 20090826
  23. FISH OIL [Concomitant]
  24. PROTONIX [Concomitant]
     Route: 048

REACTIONS (10)
  - AMYLOIDOSIS [None]
  - BACTERIURIA [None]
  - CHEST PAIN [None]
  - HYPOGLYCAEMIA [None]
  - MEDICAL DEVICE COMPLICATION [None]
  - PANCYTOPENIA [None]
  - PULMONARY OEDEMA [None]
  - RENAL FAILURE CHRONIC [None]
  - RESIDUAL URINE VOLUME [None]
  - THERAPEUTIC RESPONSE DECREASED [None]
